FAERS Safety Report 19721819 (Version 1)
Quarter: 2021Q3

REPORT INFORMATION
  Report Type: Spontaneous
  Country: FR (occurrence: FR)
  Receive Date: 20210819
  Receipt Date: 20210819
  Transmission Date: 20211014
  Serious: Yes (Hospitalization)
  Sender: FDA-Public Use
  Company Number: FR-DRREDDYS-SPO/FRA/21/0138943

PATIENT
  Age: 61 Year
  Sex: Male

DRUGS (4)
  1. PROFENID 100 MG, COMPRIME PELLICULE [Suspect]
     Active Substance: KETOPROFEN
     Indication: HEADACHE
     Dates: start: 20210525, end: 20210528
  2. RELPAX [Suspect]
     Active Substance: ELETRIPTAN HYDROBROMIDE
     Indication: HEADACHE
     Dates: start: 20210528, end: 20210528
  3. IBUPROFEN. [Suspect]
     Active Substance: IBUPROFEN
     Indication: HEADACHE
     Dosage: CP DE 400 MG DOSAGE INCONNU (CP OF 400 MG UNKNOWN DOSAGE)
     Dates: start: 20210522, end: 20210528
  4. COMIRNATY [Suspect]
     Active Substance: TOZINAMERAN
     Indication: COVID-19 IMMUNISATION
     Dosage: COVID?19 (MODIFIED NUCLEOSIDE) MRNA VACCINE
     Dates: start: 20210521, end: 20210521

REACTIONS (1)
  - Subarachnoid haemorrhage [Recovering/Resolving]

NARRATIVE: CASE EVENT DATE: 20210528
